FAERS Safety Report 12117452 (Version 1)
Quarter: 2016Q1

REPORT INFORMATION
  Report Type: Report from Study
  Country: GB (occurrence: GB)
  Receive Date: 20160225
  Receipt Date: 20160225
  Transmission Date: 20160526
  Serious: Yes (Hospitalization, Other)
  Sender: FDA-Public Use
  Company Number: GB-SA-200811979EU

PATIENT
  Age: 52 Year
  Sex: Male
  Weight: 87.6 kg

DRUGS (21)
  1. CETIRIZINE [Concomitant]
     Active Substance: CETIRIZINE HYDROCHLORIDE
     Indication: RASH
     Dates: start: 20050623
  2. FUSIDIC ACID [Concomitant]
     Active Substance: FUSIDIC ACID
     Indication: RASH
     Dosage: DOSE AS USED: 2 %
     Route: 061
     Dates: start: 20050719
  3. MULTIVITAMINS, PLAIN [Concomitant]
     Active Substance: VITAMINS
     Dosage: DOSE AS USED: 1 TABLET
     Dates: start: 1984
  4. TEGRETOL [Concomitant]
     Active Substance: CARBAMAZEPINE
     Indication: MULTIPLE SCLEROSIS
     Dates: start: 20071211
  5. DERMAL [Concomitant]
     Indication: ECZEMA
     Dosage: DOSE AS USED: 2.5 %
     Route: 061
     Dates: start: 2000
  6. PARACETAMOL [Concomitant]
     Active Substance: ACETAMINOPHEN
     Indication: MULTIPLE SCLEROSIS
     Dates: start: 20071211
  7. TERIFLUNOMIDE [Suspect]
     Active Substance: TERIFLUNOMIDE
     Indication: MULTIPLE SCLEROSIS RELAPSE
     Route: 048
     Dates: start: 20070704, end: 20080424
  8. COCODAMOL [Concomitant]
     Active Substance: ACETAMINOPHEN\CODEINE PHOSPHATE
     Indication: BACK PAIN
     Dosage: DOSE AS USED: 30/50
     Dates: start: 2000
  9. VISCOTEARS [Concomitant]
     Active Substance: CARBOMER
     Indication: EYE IRRITATION
     Route: 047
     Dates: start: 20060520
  10. GABAPENTINE [Concomitant]
     Active Substance: GABAPENTIN
     Indication: MULTIPLE SCLEROSIS
     Dates: start: 20060914
  11. HYPROMELLOSE [Concomitant]
     Active Substance: HYPROMELLOSES
     Dosage: DOSE AS USED: 0.3 %
     Route: 047
  12. VITAMIN C [Concomitant]
     Active Substance: ASCORBIC ACID
     Dosage: DOSE AS USED: 1 TABLET
     Dates: start: 20071025
  13. COD-LIVER OIL [Concomitant]
     Active Substance: FISH OIL
     Dates: start: 1984
  14. PROPRANOLOL [Concomitant]
     Active Substance: PROPRANOLOL\PROPRANOLOL HYDROCHLORIDE
     Dates: start: 2000
  15. ADAPALENE. [Concomitant]
     Active Substance: ADAPALENE
     Indication: ECZEMA
     Route: 061
     Dates: start: 2000
  16. SODIUM ALGINATE/SODIUM BICARBONATE [Concomitant]
     Indication: DYSPEPSIA
     Dates: start: 2002
  17. CASEIN. [Concomitant]
     Active Substance: CASEIN
     Dates: start: 20060501
  18. DEXAMETHAZONE [Concomitant]
     Active Substance: DEXAMETHASONE
     Route: 047
     Dates: start: 20070723
  19. CYTACON ^GLAXO^ [Concomitant]
     Dates: start: 1984
  20. OPHTHALMOLOGICALS [Concomitant]
     Dates: start: 1985
  21. CLOTRIMAZOLE. [Concomitant]
     Active Substance: CLOTRIMAZOLE
     Dosage: DOSE AS USED: 1 %
     Route: 061
     Dates: start: 20070528

REACTIONS (6)
  - Chromaturia [Recovered/Resolved]
  - Cholelithiasis [Recovered/Resolved]
  - Jaundice cholestatic [Recovered/Resolved]
  - Liver function test abnormal [Recovered/Resolved]
  - Faeces pale [Recovered/Resolved]
  - Pruritus [Recovered/Resolved]

NARRATIVE: CASE EVENT DATE: 20080411
